FAERS Safety Report 6104112-6 (Version None)
Quarter: 2009Q1

REPORT INFORMATION
  Report Type: 
  Country: None (occurrence: None)
  Receive Date: 20090305
  Receipt Date: 20090224
  Transmission Date: 20090719
  Serious: Yes (Other)
  Sender: FDA-Public Use
  Company Number: PHEH2009US01539

PATIENT
  Age: 85 Year
  Sex: Female

DRUGS (2)
  1. RECLAST [Suspect]
     Dosage: UNK
     Dates: start: 20080901
  2. ADVIL [Concomitant]
     Indication: PAIN

REACTIONS (3)
  - BACK PAIN [None]
  - MUSCLE SPASMS [None]
  - SPINAL FRACTURE [None]
